FAERS Safety Report 16716089 (Version 2)
Quarter: 2019Q4

REPORT INFORMATION
  Report Type: Spontaneous
  Country: HR (occurrence: HR)
  Receive Date: 20190819
  Receipt Date: 20191216
  Transmission Date: 20200122
  Serious: Yes (Other)
  Sender: FDA-Public Use
  Company Number: HR-MYLANLABS-2019M1076778

PATIENT
  Age: 27 Year
  Sex: Female
  Weight: 70 kg

DRUGS (7)
  1. LEPONEX [Suspect]
     Active Substance: CLOZAPINE
     Indication: PRODUCT USED FOR UNKNOWN INDICATION
     Dosage: 1250 MILLIGRAM
     Route: 048
     Dates: start: 20190603, end: 20190603
  2. LACIPIL [Suspect]
     Active Substance: LACIDIPINE
     Indication: PRODUCT USED FOR UNKNOWN INDICATION
     Dosage: 112 GRAM
     Route: 048
     Dates: start: 20190603, end: 20190603
  3. ZOLOFT [Suspect]
     Active Substance: SERTRALINE HYDROCHLORIDE
     Indication: PRODUCT USED FOR UNKNOWN INDICATION
     Dosage: 2800 MILLIGRAM
     Route: 048
     Dates: start: 20190603, end: 20190603
  4. BYOL COR [Suspect]
     Active Substance: BISOPROLOL FUMARATE
     Indication: PRODUCT USED FOR UNKNOWN INDICATION
     Dosage: 75 MILLIGRAM
     Route: 048
     Dates: start: 20190603, end: 20190603
  5. ELICEA [Suspect]
     Active Substance: ESCITALOPRAM OXALATE
     Indication: PRODUCT USED FOR UNKNOWN INDICATION
     Dosage: 280 MILLIGRAM
     Route: 048
     Dates: start: 20190603, end: 20190603
  6. XANAX [Suspect]
     Active Substance: ALPRAZOLAM
     Indication: PRODUCT USED FOR UNKNOWN INDICATION
     Dosage: 30 MILLIGRAM
     Route: 048
     Dates: start: 20190603, end: 20190603
  7. SIOFOR [Suspect]
     Active Substance: METFORMIN HYDROCHLORIDE
     Indication: PRODUCT USED FOR UNKNOWN INDICATION
     Dosage: 120 GRAM
     Route: 048
     Dates: start: 20190603, end: 20190603

REACTIONS (3)
  - Suicide attempt [Unknown]
  - Intentional overdose [Unknown]
  - Hypotension [Unknown]

NARRATIVE: CASE EVENT DATE: 20190603
